FAERS Safety Report 6615336-3 (Version None)
Quarter: 2010Q1

REPORT INFORMATION
  Report Type: 
  Country: None (occurrence: None)
  Receive Date: 20100305
  Receipt Date: 20091204
  Transmission Date: 20100710
  Serious: No
  Sender: FDA-Public Use
  Company Number: A0796267A

PATIENT
  Age: 70 Year
  Sex: Female

DRUGS (18)
  1. REQUIP [Suspect]
     Indication: PARKINSON'S DISEASE
     Dosage: 3MG THREE TIMES PER DAY
     Route: 048
     Dates: start: 20060101, end: 20090418
  2. ROPINIROLE [Suspect]
     Indication: PARKINSON'S DISEASE
     Dosage: 3MG UNKNOWN
     Route: 048
     Dates: end: 20090101
  3. ALLEGRA [Concomitant]
  4. HYDROXYZINE [Concomitant]
  5. SEROQUEL [Concomitant]
  6. FERROUS SULFATE TAB [Concomitant]
  7. CYMBALTA [Concomitant]
  8. HYDROMORPHONE HYDROCHLORIDE [Concomitant]
  9. SINEMET [Concomitant]
  10. ZETIA [Concomitant]
  11. RESTORIL [Concomitant]
  12. XANAX [Concomitant]
  13. ZOCOR [Concomitant]
  14. NEXIUM [Concomitant]
  15. NABUMETONE [Concomitant]
  16. DIOVAN [Concomitant]
  17. LASIX [Concomitant]
  18. LYRICA [Concomitant]

REACTIONS (1)
  - GAMBLING [None]
